FAERS Safety Report 5534179-5 (Version None)
Quarter: 2007Q4

REPORT INFORMATION
  Report Type: 
  Country: None (occurrence: None)
  Receive Date: 20071205
  Receipt Date: 20071127
  Transmission Date: 20080405
  Serious: Yes (Death)
  Sender: FDA-Public Use
  Company Number: AT-BAYER-200717135GPV

PATIENT
  Age: 60 Year
  Sex: Male

DRUGS (1)
  1. MAGNEVIST [Suspect]
     Indication: RENAL ANEURYSM
     Route: 042

REACTIONS (1)
  - DEATH [None]
